FAERS Safety Report 11873912 (Version 9)
Quarter: 2016Q2

REPORT INFORMATION
  Report Type: Spontaneous
  Country: GB (occurrence: GB)
  Receive Date: 20151229
  Receipt Date: 20160613
  Transmission Date: 20160815
  Serious: Yes (Hospitalization, Other)
  Sender: FDA-Public Use
  Company Number: GB-ROCHE-1681044

PATIENT
  Sex: Female

DRUGS (1)
  1. HERCEPTIN [Suspect]
     Active Substance: TRASTUZUMAB
     Indication: PRODUCT USED FOR UNKNOWN INDICATION
     Dosage: CYCLE 12, CYCLE 15
     Route: 058

REACTIONS (35)
  - Lymphadenitis [Unknown]
  - Influenza [Unknown]
  - Productive cough [Unknown]
  - Asthenia [Unknown]
  - Sleep disorder [Unknown]
  - Panic attack [Unknown]
  - Mass [Unknown]
  - Constipation [Not Recovered/Not Resolved]
  - Paraesthesia [Unknown]
  - Dyspnoea [Unknown]
  - Insomnia [Unknown]
  - Lymphoedema [Unknown]
  - Anxiety [Unknown]
  - Faecaloma [Unknown]
  - Pain [Unknown]
  - Palmar-plantar erythrodysaesthesia syndrome [Unknown]
  - Swelling [Unknown]
  - Nausea [Unknown]
  - Dry skin [Unknown]
  - Hot flush [Unknown]
  - Malnutrition [Unknown]
  - Fatigue [Unknown]
  - Peripheral swelling [Unknown]
  - Sepsis [Unknown]
  - Angina pectoris [Unknown]
  - Pain in extremity [Not Recovered/Not Resolved]
  - Diarrhoea [Not Recovered/Not Resolved]
  - Dry mouth [Unknown]
  - Malaise [Unknown]
  - Hypoaesthesia [Unknown]
  - Vomiting [Unknown]
  - Pruritus [Unknown]
  - Eczema [Unknown]
  - Gastrointestinal disorder [Unknown]
  - Swelling face [Unknown]

NARRATIVE: CASE EVENT DATE: 20151213
